FAERS Safety Report 7793245-4 (Version None)
Quarter: 2011Q4

REPORT INFORMATION
  Report Type: 
  Country: None (occurrence: None)
  Receive Date: 20111003
  Receipt Date: 20110922
  Transmission Date: 20120403
  Serious: Yes (Hospitalization, Other)
  Sender: FDA-Public Use
  Company Number: US-ASTRAZENECA-2011SE57006

PATIENT
  Age: 41 Year
  Sex: Female
  Weight: 113.4 kg

DRUGS (9)
  1. SEROQUEL [Suspect]
     Route: 048
  2. SEROQUEL [Suspect]
     Route: 048
  3. VIIBRYD [Concomitant]
     Indication: DEPRESSION
     Route: 048
     Dates: start: 20110901
  4. THORAZINE [Concomitant]
     Indication: MANIA
     Route: 048
     Dates: start: 20110801
  5. SEROQUEL [Suspect]
     Indication: BIPOLAR DISORDER
     Route: 048
     Dates: start: 20110301
  6. AMBIEN [Concomitant]
     Indication: SLEEP DISORDER
     Route: 048
     Dates: start: 20090101
  7. DEXILANT [Concomitant]
     Indication: GASTROOESOPHAGEAL REFLUX DISEASE
     Route: 048
     Dates: start: 20100101
  8. VITAMIN B COMPLEX CAP [Concomitant]
     Route: 048
     Dates: start: 20110301
  9. CLONAZEPAM [Concomitant]
     Indication: ANXIETY
     Route: 048
     Dates: start: 20080101

REACTIONS (7)
  - IMPAIRED DRIVING ABILITY [None]
  - MANIA [None]
  - ACTIVITIES OF DAILY LIVING IMPAIRED [None]
  - SELF INJURIOUS BEHAVIOUR [None]
  - DRUG EFFECT DECREASED [None]
  - DISORIENTATION [None]
  - FEELING DRUNK [None]
